FAERS Safety Report 5152674-8 (Version None)
Quarter: 2006Q4

REPORT INFORMATION
  Report Type: 
  Country: None (occurrence: None)
  Receive Date: 20061109
  Receipt Date: 20061027
  Transmission Date: 20070319
  Serious: Yes (Life-Threatening, Hospitalization)
  Sender: FDA-Public Use
  Company Number: 2006119080

PATIENT
  Age: 58 Year
  Sex: Male
  Weight: 86.1834 kg

DRUGS (1)
  1. GEODON [Suspect]
     Indication: AGITATION
     Dosage: 10 MG (10 MG), INTRAMUSCULAR
     Route: 030
     Dates: start: 20051101, end: 20051101

REACTIONS (1)
  - HYPOTENSION [None]
